FAERS Safety Report 12207777 (Version 1)
Quarter: 2016Q1

REPORT INFORMATION
  Report Type: Spontaneous
  Country: US (occurrence: US)
  Receive Date: 20160324
  Receipt Date: 20160324
  Transmission Date: 20160526
  Serious: No
  Sender: FDA-Public Use
  Company Number: US-WARNER CHILCOTT, LLC-1049596

PATIENT
  Age: 70 Year
  Sex: Female

DRUGS (5)
  1. ATENOLOL. [Concomitant]
     Active Substance: ATENOLOL
  2. ZOCOR [Concomitant]
     Active Substance: SIMVASTATIN
  3. ESTRACE [Suspect]
     Active Substance: ESTRADIOL
     Route: 067
     Dates: end: 20150514
  4. ESTRACE [Suspect]
     Active Substance: ESTRADIOL
     Route: 067
     Dates: end: 20150514
  5. NORVASC [Concomitant]
     Active Substance: AMLODIPINE BESYLATE

REACTIONS (1)
  - Vulvovaginal pruritus [Recovered/Resolved]
